FAERS Safety Report 5600098-9 (Version None)
Quarter: 2008Q1

REPORT INFORMATION
  Report Type: 
  Country: None (occurrence: None)
  Receive Date: 20080123
  Receipt Date: 20080118
  Transmission Date: 20080703
  Serious: Yes (Hospitalization)
  Sender: FDA-Public Use
  Company Number: A0704675A

PATIENT
  Age: 53 Year
  Sex: Male
  Weight: 115.5 kg

DRUGS (14)
  1. ROSIGLITAZONE [Suspect]
     Dosage: 2MG PER DAY
     Route: 048
     Dates: start: 20030131
  2. ZOCOR [Concomitant]
  3. LORATADINE [Concomitant]
  4. ALLOPURINOL [Concomitant]
  5. LEVITRA [Concomitant]
  6. INSULIN [Concomitant]
  7. AZELASTINE HCL [Concomitant]
  8. RANITIDINE [Concomitant]
  9. BUMETANIDE [Concomitant]
  10. FOLIC ACID [Concomitant]
  11. VITAMIN B-12 [Concomitant]
  12. GLIMEPIRIDE [Concomitant]
  13. ACARBOSE [Concomitant]
  14. PRAMLINTIDE [Concomitant]

REACTIONS (5)
  - BLINDNESS TRANSIENT [None]
  - HEADACHE [None]
  - OEDEMA PERIPHERAL [None]
  - PAPILLOEDEMA [None]
  - VISION BLURRED [None]
